FAERS Safety Report 9691411 (Version 3)
Quarter: 2013Q4

REPORT INFORMATION
  Report Type: Report from Study
  Country: MX (occurrence: MX)
  Receive Date: 20131115
  Receipt Date: 20131126
  Transmission Date: 20140711
  Serious: Yes (Hospitalization, Other)
  Sender: FDA-Public Use
  Company Number: PHHY2012MX042451

PATIENT
  Age: 48 Year
  Sex: Female

DRUGS (2)
  1. GALVUS MET [Suspect]
     Indication: DIABETES MELLITUS
     Dosage: 1 DF (850/50MG), DAILY
     Route: 048
     Dates: start: 20120307
  2. EXFORGE [Suspect]
     Dosage: UNK UKN, UNK
     Dates: start: 2011

REACTIONS (13)
  - Convulsion [Recovered/Resolved]
  - Blood glucose increased [Recovered/Resolved]
  - Fatigue [Recovered/Resolved]
  - Confusional state [Unknown]
  - Infection [Unknown]
  - Bacterial test positive [Unknown]
  - Impaired healing [Unknown]
  - Tremor [Recovered/Resolved]
  - Bone pain [Recovered/Resolved]
  - Skin discolouration [Recovering/Resolving]
  - Drug ineffective [Recovered/Resolved]
  - Ear discomfort [Recovered/Resolved]
  - Musculoskeletal discomfort [Recovered/Resolved]
